FAERS Safety Report 8590046-4 (Version None)
Quarter: 2012Q3

REPORT INFORMATION
  Report Type: 
  Country: None (occurrence: None)
  Receive Date: 20120813
  Receipt Date: 20120803
  Transmission Date: 20120928
  Serious: Yes (Hospitalization)
  Sender: FDA-Public Use
  Company Number: US-TEVA-353454USA

PATIENT
  Sex: Male

DRUGS (8)
  1. HYDROCHLOROTHIAZIDE [Suspect]
  2. STATIN [Concomitant]
  3. DIURETICS [Concomitant]
  4. GLUCOTROL [Suspect]
     Indication: TYPE 2 DIABETES MELLITUS
  5. SAXAGLIPTIN [Suspect]
     Indication: TYPE 2 DIABETES MELLITUS
     Dates: start: 20110909
  6. BETA-BLOCKER [Concomitant]
  7. ASPIRIN [Concomitant]
     Dates: start: 20111202
  8. ANGIOTENSIN CONVERTING ENZYME INHIBITOR [Concomitant]

REACTIONS (1)
  - DEHYDRATION [None]
